FAERS Safety Report 8453611-0 (Version None)
Quarter: 2012Q2

REPORT INFORMATION
  Report Type: 
  Country: None (occurrence: None)
  Receive Date: 20120620
  Receipt Date: 20120613
  Transmission Date: 20120825
  Serious: Yes (Death)
  Sender: FDA-Public Use
  Company Number: US-MERCK-1205USA02870

PATIENT
  Age: 58 Year
  Sex: Male

DRUGS (5)
  1. PHENERGAN HCL [Concomitant]
     Route: 065
  2. HALDOL [Concomitant]
     Route: 065
  3. MORPHINE [Concomitant]
     Route: 065
  4. ZOLINZA [Suspect]
     Indication: METASTASES TO CENTRAL NERVOUS SYSTEM
     Route: 048
     Dates: start: 20110623, end: 20110715
  5. ROXANOL [Concomitant]
     Route: 065

REACTIONS (1)
  - DEATH [None]
